FAERS Safety Report 18438856 (Version 7)
Quarter: 2021Q3

REPORT INFORMATION
  Report Type: Report from Study
  Country: US (occurrence: US)
  Receive Date: 20201028
  Receipt Date: 20210803
  Transmission Date: 20211014
  Serious: Yes (Other)
  Sender: FDA-Public Use
  Company Number: US-OTSUKA-2020_026359

PATIENT
  Sex: Female

DRUGS (2)
  1. CEDAZURIDINE AND DECITABINE [Suspect]
     Active Substance: CEDAZURIDINE\DECITABINE
     Indication: MYELODYSPLASTIC SYNDROME
     Dosage: (35 MG DECITABINE AND 100 MG CEDAZURIDINE) CYCLE 1
     Route: 065
  2. CEDAZURIDINE AND DECITABINE [Suspect]
     Active Substance: CEDAZURIDINE\DECITABINE
     Indication: REFRACTORY ANAEMIA WITH AN EXCESS OF BLASTS
     Dosage: (35 MG DECITABINE AND 100 MG CEDAZURIDINE) ONCE DAILY (ON DAYS 1?5) OF EACH 28?DAY CYCLE 3
     Route: 065
     Dates: start: 20201010

REACTIONS (3)
  - Constipation [Unknown]
  - Leukaemia [Unknown]
  - Blood count abnormal [Recovering/Resolving]
